FAERS Safety Report 7033932-9 (Version None)
Quarter: 2010Q4

REPORT INFORMATION
  Report Type: 
  Country: None (occurrence: None)
  Receive Date: 20101005
  Receipt Date: 20100927
  Transmission Date: 20110411
  Serious: Yes (Life-Threatening, Hospitalization)
  Sender: FDA-Public Use
  Company Number: 2010MA000080

PATIENT
  Age: 56 Year
  Sex: Male

DRUGS (9)
  1. INDAPAMIDE [Suspect]
     Indication: CEREBROVASCULAR ACCIDENT PROPHYLAXIS
     Dosage: 2.5 MG
  2. RANITIDINE [Suspect]
     Indication: CEREBROVASCULAR ACCIDENT PROPHYLAXIS
     Dosage: 150 MG;BID
  3. PERINDOPRIL ERBUMINE [Suspect]
     Indication: CEREBROVASCULAR ACCIDENT PROPHYLAXIS
     Dosage: 4 MG
  4. ATORVASTATIN (ATORVASTATIN) [Suspect]
     Indication: CEREBROVASCULAR ACCIDENT PROPHYLAXIS
     Dosage: 20 MG
  5. EZETIMIBE [Suspect]
  6. ASPIRIN [Concomitant]
  7. EZETIMIBE [Concomitant]
  8. GLUCOSAMINE [Concomitant]
  9. GLYCERYL TRINITRATE [Concomitant]

REACTIONS (3)
  - HAEMODIALYSIS [None]
  - HYPOTENSION [None]
  - STEVENS-JOHNSON SYNDROME [None]
